FAERS Safety Report 5189852-8 (Version None)
Quarter: 2006Q4

REPORT INFORMATION
  Report Type: 
  Country: None (occurrence: None)
  Receive Date: 20061218
  Receipt Date: 20060918
  Transmission Date: 20070319
  Serious: Yes (Other)
  Sender: FDA-Public Use
  Company Number: 2006US-03748

PATIENT
  Age: 15 Year

DRUGS (1)
  1. ISOTRETINOIN [Suspect]
     Dosage: 40 MG, BID
     Dates: start: 20060510, end: 20060719

REACTIONS (1)
  - RECTAL HAEMORRHAGE [None]
